FAERS Safety Report 7884430-1 (Version None)
Quarter: 2011Q4

REPORT INFORMATION
  Report Type: 
  Country: None (occurrence: None)
  Receive Date: 20111102
  Receipt Date: 20110630
  Transmission Date: 20120403
  Serious: Yes (Other)
  Sender: FDA-Public Use
  Company Number: US-ASTRAZENECA-2011SE39327

PATIENT
  Age: 62 Year
  Sex: Female

DRUGS (7)
  1. TRAMADOL HCL [Concomitant]
     Route: 048
  2. LEVOTHROID [Concomitant]
     Route: 048
  3. DIGOXIN [Concomitant]
     Route: 048
  4. METOPROLOL TARTRATE [Concomitant]
     Route: 048
  5. KEPPRA [Concomitant]
     Route: 048
  6. PRILOSEC [Concomitant]
     Route: 048
  7. VANDETANIB [Suspect]
     Indication: THYROID CANCER
     Route: 048

REACTIONS (1)
  - ELECTROCARDIOGRAM QT PROLONGED [None]
